FAERS Safety Report 19270576 (Version 1)
Quarter: 2021Q2

REPORT INFORMATION
  Report Type: Report from Study
  Country: US (occurrence: US)
  Receive Date: 20210518
  Receipt Date: 20210518
  Transmission Date: 20210717
  Serious: Yes (Other)
  Sender: FDA-Public Use
  Company Number: US-ROCHE-2826576

PATIENT
  Age: 24 Year
  Sex: Female
  Weight: 66 kg

DRUGS (1)
  1. ATEZOLIZUMAB. [Suspect]
     Active Substance: ATEZOLIZUMAB
     Indication: SQUAMOUS CELL CARCINOMA OF THE CERVIX
     Dosage: PATIENTS RECEIVE ATEZOLIZUMAB IV OVER 30?60 MINUTES?SUBSEQUENT DOSE ON 16/JAN/2020
     Route: 041
     Dates: start: 20191226

REACTIONS (6)
  - Vaginal haemorrhage [Unknown]
  - Hypokalaemia [Unknown]
  - Urinary tract infection [Unknown]
  - Anaemia [Unknown]
  - Nausea [Unknown]
  - Vomiting [Unknown]
